FAERS Safety Report 8420969-8 (Version None)
Quarter: 2012Q2

REPORT INFORMATION
  Report Type: 
  Country: None (occurrence: None)
  Receive Date: 20120608
  Receipt Date: 20120604
  Transmission Date: 20120825
  Serious: Yes (Other)
  Sender: FDA-Public Use
  Company Number: US-PFIZER INC-2012134239

PATIENT
  Sex: Female
  Weight: 113.38 kg

DRUGS (2)
  1. TOVIAZ [Suspect]
     Indication: URINARY INCONTINENCE
     Dosage: 8 MG, DAILY
     Route: 048
     Dates: start: 20090101, end: 20111101
  2. VERAPAMIL [Concomitant]
     Indication: BLOOD PRESSURE ABNORMAL
     Dosage: 120 MG, 2X/DAY

REACTIONS (3)
  - FALL [None]
  - BACK INJURY [None]
  - HEAD INJURY [None]
